FAERS Safety Report 17674793 (Version 2)
Quarter: 2020Q3

REPORT INFORMATION
  Report Type: Report from Study
  Country: IT (occurrence: IT)
  Receive Date: 20200416
  Receipt Date: 20200903
  Transmission Date: 20201102
  Serious: Yes (Hospitalization)
  Sender: FDA-Public Use
  Company Number: IT-ROCHE-2161827

PATIENT
  Age: 60 Year
  Sex: Female
  Weight: 54 kg

DRUGS (30)
  1. CRYSTALLOID (UNK INGREDIENTS) [Concomitant]
     Dates: start: 20180702, end: 20180702
  2. PLASIL [Concomitant]
     Active Substance: METOCLOPRAMIDE HYDROCHLORIDE
     Dates: start: 20180702, end: 20180703
  3. PNEUMOVAX 23 [Concomitant]
     Active Substance: PNEUMOCOCCAL VACCINE, POLYVALENT 23
     Dates: start: 20180705, end: 20180705
  4. RINGER LATTATO [Concomitant]
     Dates: start: 20180702, end: 20180707
  5. PACLITAXEL. [Suspect]
     Active Substance: PACLITAXEL
     Indication: OVARIAN CANCER
     Dosage: ON 05/JUN/2018, THE PATIENT RECEIVED THE MOST RECENT DOSE OF PACLITAXEL (287 MG) PRIOR TO ONSET OF T
     Route: 042
     Dates: start: 20180420
  6. FUROSEMIDE. [Concomitant]
     Active Substance: FUROSEMIDE
     Dates: start: 20180703, end: 20180703
  7. PARACETAMOL [Concomitant]
     Active Substance: ACETAMINOPHEN
     Indication: PAIN
     Dates: start: 20180711
  8. PERFALGAN [Concomitant]
     Active Substance: ACETAMINOPHEN
     Dates: start: 20180703, end: 20180707
  9. METRONIDAZOLO [Concomitant]
     Active Substance: METRONIDAZOLE
     Dates: start: 20180703, end: 20180703
  10. CACIT (ITALY) [Concomitant]
     Indication: OSTEOPOROSIS
     Dates: start: 20150101
  11. XARENEL [Concomitant]
     Indication: OSTEOPOROSIS
     Dates: start: 20150101
  12. PROPOFOL. [Concomitant]
     Active Substance: PROPOFOL
     Dates: start: 20180702, end: 20180702
  13. PALEXIA [Concomitant]
     Active Substance: TAPENTADOL HYDROCHLORIDE
     Dates: start: 20180711
  14. BLINDED ATEZOLIZUMAB [Suspect]
     Active Substance: ATEZOLIZUMAB
     Indication: OVARIAN CANCER
     Dosage: ON 05/JUN/2018, THE PATIENT RECEIVED THE MOST RECENT DOSE OF BLINDED ATEZOLIZUMAB PRIOR TO ONSET OF
     Route: 042
     Dates: start: 20180420
  15. CARBOPLATIN. [Suspect]
     Active Substance: CARBOPLATIN
     Indication: OVARIAN CANCER
     Dosage: AT A DOSE TO ACHIEVE A TARGET AREA UNDER THE CURVE (AUC) OF 6 MILLIGRAMS PER MILLILITER*MINUTE?ON 05
     Route: 042
     Dates: start: 20180420
  16. CLEXANE [Concomitant]
     Active Substance: ENOXAPARIN SODIUM
     Dates: start: 20180702, end: 20180811
  17. ONDANSETRON [Concomitant]
     Active Substance: ONDANSETRON
     Dates: start: 20180702, end: 20180702
  18. CONTRAMAL [Concomitant]
     Active Substance: TRAMADOL HYDROCHLORIDE
     Dates: start: 20180702, end: 20180703
  19. PARACETAMOL [Concomitant]
     Active Substance: ACETAMINOPHEN
     Dates: start: 20180703, end: 20180703
  20. DESAMETASONE [Concomitant]
     Active Substance: DEXAMETHASONE
     Dates: start: 20180702, end: 20180702
  21. CEFAZOLINA [Concomitant]
     Active Substance: CEFAZOLIN SODIUM
     Dates: start: 20180702, end: 20180703
  22. LANSOPRAZOLO [Concomitant]
     Active Substance: LANSOPRAZOLE
     Dates: start: 20180711, end: 20180811
  23. KETOROLAC [Concomitant]
     Active Substance: KETOROLAC TROMETHAMINE
     Dates: start: 20180702, end: 20180710
  24. PLASIL [Concomitant]
     Active Substance: METOCLOPRAMIDE HYDROCHLORIDE
     Dates: start: 20180727, end: 20180802
  25. OLIMEL [Concomitant]
     Active Substance: AMINO ACIDS\DEXTROSE\SOYBEAN OIL
     Dates: start: 20180707, end: 20180708
  26. RANITIDINE. [Concomitant]
     Active Substance: RANITIDINE
     Dates: start: 20180702, end: 20180707
  27. FENTANEST [Concomitant]
     Active Substance: FENTANYL CITRATE
     Dates: start: 20180702, end: 20180702
  28. MENJUGATE [Concomitant]
     Active Substance: MENINGOCOCCAL POLYSACCHARIDE VACCINE C
     Dates: start: 20180703, end: 20180703
  29. MORFINA [Concomitant]
     Active Substance: MORPHINE HYDROCHLORIDE
     Dates: start: 20180703, end: 20180703
  30. BEVACIZUMAB. [Suspect]
     Active Substance: BEVACIZUMAB
     Indication: OVARIAN CANCER
     Dosage: ON 11/MAY/2018, THE PATIENT RECEIVED THE MOST RECENT DOSE OF BEVACIZUMAB (990 MG) PRIOR TO ONSET OF
     Route: 042
     Dates: start: 20180420

REACTIONS (1)
  - Small intestinal obstruction [Recovered/Resolved]

NARRATIVE: CASE EVENT DATE: 20180724
